FAERS Safety Report 5524833-3 (Version None)
Quarter: 2007Q4

REPORT INFORMATION
  Report Type: 
  Country: None (occurrence: None)
  Receive Date: 20071126
  Receipt Date: 20071121
  Transmission Date: 20080405
  Serious: Yes (Death)
  Sender: FDA-Public Use
  Company Number: PHFR2007GB03385

PATIENT
  Age: 46 Year
  Sex: Female
  Weight: 66 kg

DRUGS (3)
  1. CYCLOSPORINE [Suspect]
     Indication: PROPHYLAXIS AGAINST TRANSPLANT REJECTION
     Route: 048
     Dates: start: 20070809, end: 20070924
  2. COTRIM [Concomitant]
     Dosage: 960 MG
     Route: 065
     Dates: start: 20070815
  3. ERYTHROMYCIN [Concomitant]
     Dosage: 250 MG, BID
     Route: 065
     Dates: start: 20070815

REACTIONS (1)
  - THROMBOTIC THROMBOCYTOPENIC PURPURA [None]
